FAERS Safety Report 17488573 (Version 1)
Quarter: 2020Q1

REPORT INFORMATION
  Report Type: Spontaneous
  Country: GR (occurrence: GR)
  Receive Date: 20200303
  Receipt Date: 20200303
  Transmission Date: 20200409
  Serious: Yes (Hospitalization, Other)
  Sender: FDA-Public Use
  Company Number: NVSC2020GR058821

PATIENT
  Age: 78 Year
  Sex: Male

DRUGS (1)
  1. METFORMIN HYDROCHLORIDE. [Suspect]
     Active Substance: METFORMIN HYDROCHLORIDE
     Indication: TYPE 2 DIABETES MELLITUS
     Dosage: UNK, UNK
     Route: 065

REACTIONS (10)
  - Blood parathyroid hormone increased [Unknown]
  - Neutrophil count abnormal [Unknown]
  - Haemoglobin decreased [Recovered/Resolved]
  - Weight decreased [Unknown]
  - Vitamin B12 decreased [Unknown]
  - Confusional state [Recovered/Resolved]
  - Mean cell volume increased [Unknown]
  - Behaviour disorder [Recovered/Resolved]
  - Hallucination [Recovered/Resolved]
  - Blood thyroid stimulating hormone increased [Unknown]
